FAERS Safety Report 6848788-4 (Version None)
Quarter: 2010Q3

REPORT INFORMATION
  Report Type: 
  Country: None (occurrence: None)
  Receive Date: 20100716
  Receipt Date: 20070912
  Transmission Date: 20110219
  Serious: No
  Sender: FDA-Public Use
  Company Number: US-PFIZER INC-2007076246

PATIENT
  Sex: Male
  Weight: 72.727 kg

DRUGS (7)
  1. CHANTIX [Suspect]
     Indication: SMOKING CESSATION THERAPY
     Dates: start: 20070901
  2. SYNTHROID [Concomitant]
     Indication: BASEDOW'S DISEASE
  3. DEXTROSTAT [Concomitant]
  4. IMITREX [Concomitant]
  5. NAPROSYN [Concomitant]
  6. LORCET-HD [Concomitant]
  7. TOPAMAX [Concomitant]
     Indication: MIGRAINE

REACTIONS (4)
  - DEHYDRATION [None]
  - FATIGUE [None]
  - HYPERHIDROSIS [None]
  - PALPITATIONS [None]
